FAERS Safety Report 14922109 (Version 1)
Quarter: 2018Q2

REPORT INFORMATION
  Report Type: Spontaneous
  Country: US (occurrence: US)
  Receive Date: 20180522
  Receipt Date: 20180522
  Transmission Date: 20180711
  Serious: No
  Sender: FDA-Public Use
  Company Number: US-LUPIN PHARMACEUTICALS INC.-2017-04237

PATIENT
  Age: 83 Year
  Sex: Male
  Weight: 86.17 kg

DRUGS (1)
  1. QUETIAPINE TABLETS [Suspect]
     Active Substance: QUETIAPINE
     Indication: BIPOLAR DISORDER
     Dosage: UNK UNK, BID
     Route: 048
     Dates: start: 20161221, end: 20161222

REACTIONS (1)
  - Mania [Unknown]

NARRATIVE: CASE EVENT DATE: 20161222
